APPROVED DRUG PRODUCT: AMOXICILLIN
Active Ingredient: AMOXICILLIN
Strength: 250MG
Dosage Form/Route: CAPSULE;ORAL
Application: A064076 | Product #001 | TE Code: AB
Applicant: SANDOZ INC
Approved: Sep 30, 1994 | RLD: No | RS: No | Type: RX